FAERS Safety Report 11403796 (Version 1)
Quarter: 2015Q3

REPORT INFORMATION
  Report Type: Spontaneous
  Country: JP (occurrence: JP)
  Receive Date: 20150821
  Receipt Date: 20150821
  Transmission Date: 20151125
  Serious: Yes (Death)
  Sender: FDA-Public Use
  Company Number: JP-TEVA-585862ISR

PATIENT
  Sex: Male
  Weight: 40 kg

DRUGS (5)
  1. FENTANYL. [Concomitant]
     Active Substance: FENTANYL
     Indication: CANCER PAIN
     Dosage: 4.2 MILLIGRAM DAILY;
     Route: 062
     Dates: start: 20141021, end: 20141103
  2. E-FEN BUCCAL [Suspect]
     Active Substance: FENTANYL CITRATE
     Indication: BREAKTHROUGH PAIN
     Dosage: DAILY DOSE: 50-200 MICROGRAM
     Route: 002
     Dates: start: 20141020, end: 20141022
  3. E-FEN BUCCAL [Suspect]
     Active Substance: FENTANYL CITRATE
     Dosage: DAILY DOSE: 100-400 MICROGRAM
     Route: 002
     Dates: start: 20141025, end: 20141103
  4. ELNEOPA NO.2 [Concomitant]
     Active Substance: AMINO ACIDS\CARBOHYDRATES\ELECTROLYTES NOS\VITAMINS
     Dosage: 1000 ML DAILY;
     Route: 041
     Dates: start: 20141017, end: 20141103
  5. ELNEOPA NO.1 [Concomitant]
     Dosage: 1000 ML DAILY;
     Route: 041
     Dates: start: 20141014, end: 20141016

REACTIONS (1)
  - Gastric cancer [Fatal]
